FAERS Safety Report 7523767-2 (Version None)
Quarter: 2011Q2

REPORT INFORMATION
  Report Type: 
  Country: None (occurrence: None)
  Receive Date: 20110603
  Receipt Date: 20110525
  Transmission Date: 20111010
  Serious: Yes (Hospitalization, Other)
  Sender: FDA-Public Use
  Company Number: US-ASTRAZENECA-2011SE32210

PATIENT
  Age: 53 Year
  Sex: Male

DRUGS (7)
  1. NEXIUM [Suspect]
     Indication: GASTROOESOPHAGEAL REFLUX DISEASE
     Route: 048
     Dates: start: 20010101
  2. ZOCOR [Concomitant]
  3. ASCORBIC ACID [Concomitant]
  4. CYMBALTA [Concomitant]
  5. NEURONTIN [Concomitant]
     Dosage: THREE TIMES DAILY
  6. FISH OIL [Concomitant]
  7. VITAMIN D [Concomitant]

REACTIONS (8)
  - DYSPEPSIA [None]
  - INCORRECT DRUG ADMINISTRATION DURATION [None]
  - SPINAL FUSION SURGERY [None]
  - OSTEOARTHRITIS [None]
  - THERAPEUTIC PROCEDURE [None]
  - SPINAL NERVE STIMULATOR IMPLANTATION [None]
  - INTERVERTEBRAL DISC PROTRUSION [None]
  - DRUG DOSE OMISSION [None]
